FAERS Safety Report 19511088 (Version 2)
Quarter: 2025Q1

REPORT INFORMATION
  Report Type: Spontaneous
  Country: FR (occurrence: FR)
  Receive Date: 20210709
  Receipt Date: 20250213
  Transmission Date: 20250408
  Serious: Yes (Other)
  Sender: AUROBINDO
  Company Number: FR-AMGEN-FRASP2021096494

PATIENT
  Age: 15 Day
  Sex: Male

DRUGS (3)
  1. CINACALCET [Suspect]
     Active Substance: CINACALCET
     Indication: Hyperparathyroidism
     Dosage: 1 DOSAGE FORM, ONCE A DAY (0.5 MG/KG, QD)
     Route: 048
  2. CINACALCET [Suspect]
     Active Substance: CINACALCET
     Dosage: 1 DOSAGE FORM, ONCE A DAY (3 MG/KG, QD)
     Route: 048
  3. OXYGEN [Concomitant]
     Active Substance: OXYGEN
     Indication: Respiratory distress
     Route: 065

REACTIONS (3)
  - Nephrocalcinosis [Unknown]
  - Drug effective for unapproved indication [Unknown]
  - Off label use [Unknown]
